FAERS Safety Report 17646300 (Version 1)
Quarter: 2020Q2

REPORT INFORMATION
  Report Type: Spontaneous
  Country: US (occurrence: US)
  Receive Date: 20200408
  Receipt Date: 20200408
  Transmission Date: 20200713
  Serious: Yes (Other)
  Sender: FDA-Public Use
  Company Number: US-SA-2020SA088144

PATIENT
  Age: 59 Year
  Sex: Female

DRUGS (6)
  1. DUPILUMAB [Suspect]
     Active Substance: DUPILUMAB
     Dosage: 300 MG, QOW
     Route: 058
  2. GABAPENTIN. [Concomitant]
     Active Substance: GABAPENTIN
     Route: 048
  3. TACROLIMUS. [Concomitant]
     Active Substance: TACROLIMUS
     Route: 061
  4. DUPILUMAB [Suspect]
     Active Substance: DUPILUMAB
     Indication: DERMATITIS ATOPIC
     Dosage: 600 MG LOADING DOSE, 1X
  5. OMALIZUMAB. [Concomitant]
     Active Substance: OMALIZUMAB
     Indication: ASTHMA
  6. DUPILUMAB [Suspect]
     Active Substance: DUPILUMAB
     Dosage: 300MG EVERY 3.5 WEEKS

REACTIONS (7)
  - Condition aggravated [Recovering/Resolving]
  - Lymphadenopathy [Recovering/Resolving]
  - Skin plaque [Recovering/Resolving]
  - Cutaneous T-cell lymphoma stage I [Recovering/Resolving]
  - Unintentional use for unapproved indication [Recovering/Resolving]
  - Weight decreased [Recovering/Resolving]
  - Fatigue [Recovering/Resolving]
